FAERS Safety Report 7212501-1 (Version None)
Quarter: 2011Q1

REPORT INFORMATION
  Report Type: 
  Country: None (occurrence: None)
  Receive Date: 20110106
  Receipt Date: 20101231
  Transmission Date: 20110831
  Serious: No
  Sender: FDA-Public Use
  Company Number: US-PFIZER INC-2011000003

PATIENT
  Sex: Female
  Weight: 72.56 kg

DRUGS (3)
  1. ZMAX [Suspect]
     Indication: NASOPHARYNGITIS
     Dosage: 200 MG, DAILY
     Route: 048
     Dates: start: 20101230, end: 20101230
  2. ZMAX [Suspect]
     Indication: COUGH
  3. ZMAX [Suspect]
     Indication: BRONCHITIS

REACTIONS (4)
  - DIARRHOEA [None]
  - PYREXIA [None]
  - CHILLS [None]
  - NAUSEA [None]
